FAERS Safety Report 7601713-0 (Version None)
Quarter: 2011Q3

REPORT INFORMATION
  Report Type: 
  Country: None (occurrence: None)
  Receive Date: 20110711
  Receipt Date: 20110705
  Transmission Date: 20111222
  Serious: Yes (Hospitalization)
  Sender: FDA-Public Use
  Company Number: GB-PFIZER INC-2011152853

PATIENT

DRUGS (3)
  1. DOXAZOSIN MESYLATE [Suspect]
     Dosage: UNK
  2. RAMIPRIL [Suspect]
     Dosage: UNK
  3. BENDROFLUMETHIAZIDE [Suspect]

REACTIONS (2)
  - ORTHOSTATIC HYPOTENSION [None]
  - DEHYDRATION [None]
